FAERS Safety Report 10726579 (Version 1)
Quarter: 2015Q1

REPORT INFORMATION
  Report Type: Spontaneous
  Country: HR (occurrence: HR)
  Receive Date: 20150121
  Receipt Date: 20150121
  Transmission Date: 20150721
  Serious: Yes (Life-Threatening, Hospitalization)
  Sender: FDA-Public Use
  Company Number: HR-SA-2015SA005374

PATIENT
  Age: 41 Year
  Sex: Female
  Weight: 65 kg

DRUGS (1)
  1. FERRLECIT [Suspect]
     Active Substance: SODIUM FERRIC GLUCONATE COMPLEX
     Indication: IRON DEFICIENCY ANAEMIA
     Route: 041
     Dates: start: 20140903, end: 20140903

REACTIONS (11)
  - Local swelling [Recovered/Resolved]
  - Pruritus generalised [Recovered/Resolved]
  - Hypoaesthesia [Recovered/Resolved]
  - Uterine spasm [Recovered/Resolved]
  - Expired product administered [Unknown]
  - Erythema [Recovered/Resolved]
  - Induration [Recovered/Resolved]
  - Chills [Recovered/Resolved]
  - Blood pressure decreased [Recovered/Resolved]
  - Abdominal pain upper [Recovered/Resolved]
  - Bradycardia [Recovered/Resolved]

NARRATIVE: CASE EVENT DATE: 20140903
